FAERS Safety Report 17239215 (Version 2)
Quarter: 2022Q4

REPORT INFORMATION
  Report Type: Spontaneous
  Country: US (occurrence: US)
  Receive Date: 20200106
  Receipt Date: 20221008
  Transmission Date: 20230113
  Serious: No
  Sender: FDA-Public Use
  Company Number: US-NAPPMUNDI-USA-2019-0149504

PATIENT

DRUGS (1)
  1. OXYCODONE HYDROCHLORIDE [Suspect]
     Active Substance: OXYCODONE HYDROCHLORIDE
     Indication: Pain
     Dosage: 20 MG, UNK
     Route: 048

REACTIONS (3)
  - Mobility decreased [Unknown]
  - Suspected counterfeit product [Unknown]
  - Unevaluable event [Unknown]
